FAERS Safety Report 8915347 (Version 1)
Quarter: 2012Q4

REPORT INFORMATION
  Report Type: 
  Country: US (occurrence: US)
  Receive Date: 20121119
  Receipt Date: 20121119
  Transmission Date: 20130627
  Serious: No
  Sender: FDA-Public Use
  Company Number: US-PFIZER INC-2012282858

PATIENT
  Sex: Female

DRUGS (2)
  1. EPIPEN [Suspect]
     Dosage: UNK
  2. BENADRYL [Suspect]

REACTIONS (2)
  - Insomnia [Unknown]
  - Mood altered [Unknown]
